FAERS Safety Report 4607714-9 (Version None)
Quarter: 2005Q1

REPORT INFORMATION
  Report Type: 
  Country: None (occurrence: None)
  Receive Date: 20050314
  Receipt Date: 20050303
  Transmission Date: 20050727
  Serious: Yes (Other)
  Sender: FDA-Public Use
  Company Number: PHEH2005US02745

PATIENT
  Sex: 0

DRUGS (1)
  1. ENABLEX [Suspect]
     Dosage: 7.5 MG, QD
     Route: 048

REACTIONS (2)
  - CONSTIPATION [None]
  - INTESTINAL OBSTRUCTION [None]
